FAERS Safety Report 9457478 (Version 1)
Quarter: 2013Q3

REPORT INFORMATION
  Report Type: Spontaneous
  Country: IT (occurrence: None)
  Receive Date: 20130812
  Receipt Date: 20130812
  Transmission Date: 20140515
  Serious: Yes (Hospitalization)
  Sender: FDA-Public Use
  Company Number: SYM-2013-07908

PATIENT
  Age: 66 Year
  Sex: Female

DRUGS (5)
  1. 5 FU [Suspect]
     Indication: COLORECTAL CANCER
     Route: 040
     Dates: start: 20130610, end: 20130610
  2. LEUCOVORIN (FOLINIC ACID) (SOLUTION FOR INFUSION) (FOLINIC ACID) [Suspect]
     Indication: COLORECTAL CANCER
     Route: 042
     Dates: start: 20130610, end: 20130610
  3. IRINOTECAN [Suspect]
     Indication: COLORECTAL CANCER
     Route: 042
     Dates: start: 20130610, end: 20130610
  4. AFLIBERCEPT [Suspect]
     Indication: COLORECTAL CANCER
     Route: 042
     Dates: start: 20130610, end: 20130610
  5. ALOXI (PALONOSETRON HYDROCHLORIDE) (PALONOSETRON HYDROCHLORIDE) [Concomitant]

REACTIONS (2)
  - Weight decreased [None]
  - General physical condition abnormal [None]
